FAERS Safety Report 4335864-3 (Version None)
Quarter: 2004Q2

REPORT INFORMATION
  Report Type: 
  Country: None (occurrence: None)
  Receive Date: 20040405
  Receipt Date: 20040324
  Transmission Date: 20050107
  Serious: Yes (Other)
  Sender: FDA-Public Use
  Company Number: GRP04000051

PATIENT
  Age: 76 Year
  Sex: Female
  Weight: 53 kg

DRUGS (2)
  1. ACTONEL [Suspect]
     Indication: OSTEOPOROSIS
     Dosage: SEE IMAGE
     Route: 048
     Dates: end: 20030801
  2. ACTONEL [Suspect]
     Indication: OSTEOPOROSIS
     Dosage: SEE IMAGE
     Route: 048
     Dates: start: 20040101, end: 20040219

REACTIONS (2)
  - CONDITION AGGRAVATED [None]
  - WHITE BLOOD CELL COUNT INCREASED [None]
